FAERS Safety Report 5455040-0 (Version None)
Quarter: 2007Q3

REPORT INFORMATION
  Report Type: 
  Country: None (occurrence: None)
  Receive Date: 20070918
  Receipt Date: 20070906
  Transmission Date: 20080115
  Serious: Yes (Other)
  Sender: FDA-Public Use
  Company Number: PHRM2007FR01993

PATIENT
  Sex: Male
  Weight: 75 kg

DRUGS (2)
  1. TRILEPTAL [Suspect]
     Indication: EPILEPSY
     Dosage: UNK, UNK
     Route: 048
     Dates: start: 20030101
  2. DI-HYDAN [Suspect]
     Indication: EPILEPSY
     Dates: start: 20020101

REACTIONS (1)
  - EJACULATION FAILURE [None]
